FAERS Safety Report 23745060 (Version 1)
Quarter: 2024Q2

REPORT INFORMATION
  Report Type: Report from Study
  Country: BR (occurrence: BR)
  Receive Date: 20240415
  Receipt Date: 20240415
  Transmission Date: 20240716
  Serious: Yes (Other)
  Sender: FDA-Public Use
  Company Number: BR-ABBVIE-22K-020-4453434-00

PATIENT
  Age: 45 Year
  Sex: Female
  Weight: 57 kg

DRUGS (5)
  1. RINVOQ [Suspect]
     Active Substance: UPADACITINIB
     Indication: Rheumatoid arthritis
     Route: 048
  2. RINVOQ [Suspect]
     Active Substance: UPADACITINIB
     Indication: Rheumatoid arthritis
     Dosage: FORM STRENGTH: 15 MILLIGRAM
     Route: 048
     Dates: start: 20210810
  3. ETODOLAC [Concomitant]
     Active Substance: ETODOLAC
     Indication: Pain
     Route: 048
     Dates: start: 2016
  4. COLLAGEN II [Concomitant]
     Indication: Osteoarthritis
     Dosage: FORM STRENGTH: 40 MILLIGRAM
     Dates: start: 2022
  5. VITAMIN D3 [Concomitant]
     Active Substance: CHOLECALCIFEROL
     Indication: Immunodeficiency
     Dosage: TIME INTERVAL: 0.33333333 WEEKS: START DATE TEXT: BEFORE USING RINVOQ
     Route: 048

REACTIONS (19)
  - Pain in extremity [Recovering/Resolving]
  - Intentional product misuse [Unknown]
  - Synovial rupture [Unknown]
  - Rheumatoid arthritis [Unknown]
  - Unevaluable event [Unknown]
  - Herpes zoster [Recovered/Resolved]
  - Mobility decreased [Recovering/Resolving]
  - Ligament sprain [Recovered/Resolved]
  - Joint lock [Recovering/Resolving]
  - Skin abrasion [Recovered/Resolved]
  - Skin discolouration [Recovered/Resolved]
  - Joint lock [Recovered/Resolved]
  - Gait disturbance [Recovering/Resolving]
  - Joint injury [Recovering/Resolving]
  - Therapeutic product effect incomplete [Not Recovered/Not Resolved]
  - Fall [Recovered/Resolved]
  - Dysstasia [Recovering/Resolving]
  - Pain [Unknown]
  - Muscle spasms [Recovering/Resolving]

NARRATIVE: CASE EVENT DATE: 20230901
